FAERS Safety Report 5745262-3 (Version None)
Quarter: 2008Q2

REPORT INFORMATION
  Report Type: 
  Country: None (occurrence: None)
  Receive Date: 20080521
  Receipt Date: 20080502
  Transmission Date: 20081010
  Serious: Yes (Hospitalization, Other)
  Sender: FDA-Public Use
  Company Number: US-BAYER-US-2006-036757

PATIENT
  Age: 32 Year
  Sex: Female

DRUGS (8)
  1. CAMPATH [Suspect]
     Indication: MULTIPLE SCLEROSIS
     Dosage: UNIT DOSE: 24 MG
     Route: 042
     Dates: start: 20040105, end: 20040109
  2. CAMPATH [Suspect]
     Dosage: UNIT DOSE: 24 MG
     Route: 042
     Dates: start: 20050103, end: 20050105
  3. MIRCETTE [Concomitant]
     Dates: start: 20030901, end: 20060701
  4. ACETAMINOPHEN [Concomitant]
     Dates: start: 20050103, end: 20050103
  5. IBUPROFEN [Concomitant]
     Dates: start: 20040313, end: 20040317
  6. PEPCID [Concomitant]
     Dates: start: 20060103, end: 20060105
  7. ZYRTEC [Concomitant]
     Dates: start: 20060103, end: 20060105
  8. MULTI-VITAMIN [Concomitant]
     Dates: start: 20060901

REACTIONS (2)
  - ABORTION SPONTANEOUS [None]
  - DRUG EXPOSURE BEFORE PREGNANCY [None]
